FAERS Safety Report 13822335 (Version 1)
Quarter: 2017Q3

REPORT INFORMATION
  Report Type: Spontaneous
  Country: US (occurrence: US)
  Receive Date: 20170801
  Receipt Date: 20170801
  Transmission Date: 20171127
  Serious: No
  Sender: FDA-Public Use
  Company Number: US-IMPAX LABORATORIES, INC-2016-IPXL-02532

PATIENT
  Age: 44 Year
  Sex: Female
  Weight: 91 kg

DRUGS (1)
  1. ALBENZA [Suspect]
     Active Substance: ALBENDAZOLE
     Indication: PARASITIC INFECTION PROPHYLAXIS
     Dosage: 2 DOSES OF 200 MG, EVERY 2WK, 1 TABLET
     Route: 065

REACTIONS (1)
  - Off label use [Unknown]
